FAERS Safety Report 15118991 (Version 1)
Quarter: 2018Q3

REPORT INFORMATION
  Report Type: Spontaneous
  Country: IT (occurrence: IT)
  Receive Date: 20180709
  Receipt Date: 20180709
  Transmission Date: 20181010
  Serious: Yes (Other)
  Sender: FDA-Public Use
  Company Number: IT-009507513-1807ITA000322

PATIENT
  Age: 32 Year
  Sex: Male
  Weight: 82 kg

DRUGS (1)
  1. VANTAVO [Suspect]
     Active Substance: ALENDRONATE SODIUM\CHOLECALCIFEROL
     Indication: FRACTURE
     Dosage: UNK
     Route: 048
     Dates: start: 20180521

REACTIONS (1)
  - Pain [Recovered/Resolved]

NARRATIVE: CASE EVENT DATE: 20180521
